FAERS Safety Report 17339373 (Version 1)
Quarter: 2020Q1

REPORT INFORMATION
  Report Type: Spontaneous
  Country: US (occurrence: US)
  Receive Date: 20200129
  Receipt Date: 20200129
  Transmission Date: 20200409
  Serious: Yes (Other)
  Sender: FDA-Public Use
  Company Number: US-CHEPLA-C20200360

PATIENT
  Age: 65 Year
  Sex: Male

DRUGS (9)
  1. ELVITEGRAVIR [Suspect]
     Active Substance: ELVITEGRAVIR
     Indication: ANTIRETROVIRAL THERAPY
  2. EMTRICITABINE [Suspect]
     Active Substance: EMTRICITABINE
     Indication: ANTIRETROVIRAL THERAPY
  3. GANCICLOVIR. [Suspect]
     Active Substance: GANCICLOVIR
     Indication: CYTOMEGALOVIRUS VIRAEMIA
     Route: 042
  4. CEFTRIAXONE. [Suspect]
     Active Substance: CEFTRIAXONE
     Indication: PNEUMONIA
  5. COBICISTAT [Suspect]
     Active Substance: COBICISTAT
     Indication: ANTIRETROVIRAL THERAPY
  6. VANCOMYCIN [Suspect]
     Active Substance: VANCOMYCIN
     Indication: SUPERINFECTION
  7. GANCICLOVIR. [Suspect]
     Active Substance: GANCICLOVIR
     Indication: CYTOMEGALOVIRUS VIRAEMIA
     Route: 042
  8. DOXYCYCLINE. [Suspect]
     Active Substance: DOXYCYCLINE
     Indication: PNEUMONIA
  9. TENOFOVIR ALAFENAMIDE [Suspect]
     Active Substance: TENOFOVIR ALAFENAMIDE
     Indication: ANTIRETROVIRAL THERAPY

REACTIONS (2)
  - Quadriparesis [Not Recovered/Not Resolved]
  - Paralysis [Not Recovered/Not Resolved]
